FAERS Safety Report 4890994-2 (Version None)
Quarter: 2006Q1

REPORT INFORMATION
  Report Type: 
  Country: None (occurrence: None)
  Receive Date: 20060123
  Receipt Date: 20060110
  Transmission Date: 20060701
  Serious: Yes (Death)
  Sender: FDA-Public Use
  Company Number: US200601001605

PATIENT
  Age: 91 Year
  Sex: Female

DRUGS (2)
  1. FORTEO [Suspect]
     Indication: OSTEOPOROSIS
     Dates: start: 20030101
  2. FORTEO [Concomitant]

REACTIONS (1)
  - CARDIAC FAILURE CONGESTIVE [None]
